FAERS Safety Report 22651965 (Version 1)
Quarter: 2023Q2

REPORT INFORMATION
  Report Type: Spontaneous
  Country: US (occurrence: US)
  Receive Date: 20230628
  Receipt Date: 20230628
  Transmission Date: 20230721
  Serious: No
  Sender: FDA-Public Use
  Company Number: US-002147023-NVSC2023US147379

PATIENT
  Sex: Male

DRUGS (1)
  1. PREDNISOLONE ACETATE [Suspect]
     Active Substance: PREDNISOLONE ACETATE
     Indication: Product used for unknown indication
     Dosage: 1 DRP, QW (5ML LDP US)
     Route: 065

REACTIONS (4)
  - Diplopia [Unknown]
  - Pain [Unknown]
  - Headache [Unknown]
  - Vision blurred [Recovering/Resolving]
